FAERS Safety Report 9548393 (Version 4)
Quarter: 2013Q4

REPORT INFORMATION
  Report Type: Spontaneous
  Country: JP (occurrence: JP)
  Receive Date: 20130924
  Receipt Date: 20131105
  Transmission Date: 20140711
  Serious: Yes (Other)
  Sender: FDA-Public Use
  Company Number: PHHY2013JP105161

PATIENT
  Sex: Female
  Weight: 42 kg

DRUGS (7)
  1. VOLTAREN [Suspect]
     Route: 048
  2. FLUTIDE [Suspect]
     Dosage: 400 UG, UNK
  3. FLUTIDE [Suspect]
     Dosage: 200 UG, UNK
  4. BAKUMONDOTO [Suspect]
     Dosage: 3 DF, UNK
  5. SULTANOL [Concomitant]
  6. MEPTIN [Concomitant]
     Route: 048
  7. UNIPHYLLA [Concomitant]
     Dosage: 400 MG, UNK
     Route: 048

REACTIONS (16)
  - Asthma [Recovered/Resolved]
  - Haemoptysis [Unknown]
  - Wheezing [Unknown]
  - Aphonia [Recovered/Resolved]
  - Blood immunoglobulin E increased [Unknown]
  - Radioallergosorbent test positive [Unknown]
  - Chronic obstructive pulmonary disease [Unknown]
  - Forced expiratory volume decreased [Unknown]
  - Urine ketone body present [Unknown]
  - Peripheral coldness [Unknown]
  - Muscle tightness [Unknown]
  - Heart rate decreased [Unknown]
  - Blood pressure decreased [Unknown]
  - Protein urine present [Unknown]
  - Nausea [Unknown]
  - Maternal exposure during pregnancy [Unknown]
